FAERS Safety Report 8653972 (Version 7)
Quarter: 2013Q1

REPORT INFORMATION
  Report Type: Report from Study
  Country: FR (occurrence: FR)
  Receive Date: 20120621
  Receipt Date: 20130218
  Transmission Date: 20140127
  Serious: Yes (Death, Life-Threatening, Hospitalization, Other)
  Sender: FDA-Public Use
  Company Number: FR-009507513-2012SP031038

PATIENT
  Age: 49 Year
  Sex: Male
  Weight: 96 kg

DRUGS (11)
  1. BOCEPREVIR [Suspect]
     Indication: HEPATITIS C
     Dosage: 800 MG, TID
     Dates: start: 20120529, end: 20120606
  2. PEGASYS [Suspect]
     Indication: HEPATITIS C
     Dosage: 180 ?G, QW
     Dates: start: 20120430, end: 20120606
  3. COPEGUS [Suspect]
     Indication: HEPATITIS C
     Dosage: 1200 MG, QD
     Dates: start: 20120430, end: 20120606
  4. ALDACTONE TABLETS [Concomitant]
     Indication: HEPATIC CIRRHOSIS
     Dosage: 75 MG, QD
     Dates: start: 20100421
  5. LASILIX [Concomitant]
     Indication: HEPATIC CIRRHOSIS
     Dosage: 40 MG, QD
     Dates: start: 20100421
  6. IXEL [Concomitant]
     Indication: PRURITUS
     Dosage: 50 MG, QD
     Dates: start: 2009
  7. ABILIFY [Concomitant]
     Indication: DEPRESSION
     Dosage: 5 MG, QD
     Dates: start: 20100529
  8. UVEDOSE [Concomitant]
     Indication: VITAMIN D DEFICIENCY
     Dosage: 30000 IU, QOW
  9. DELURSAN [Concomitant]
     Indication: PRODUCT USED FOR UNKNOWN INDICATION
     Dosage: UNK
  10. NEUPOGEN [Concomitant]
     Indication: NEUTROPENIA
     Dosage: 30000 IU, QW
     Dates: start: 20090604
  11. REVOLADE [Concomitant]
     Indication: THROMBOCYTOPENIA
     Dosage: 25 MG, QD
     Dates: start: 20120604

REACTIONS (11)
  - Multi-organ failure [Fatal]
  - Peritonitis [Fatal]
  - Septic shock [Fatal]
  - Leukopenia [Recovered/Resolved]
  - General physical health deterioration [Recovered/Resolved]
  - Pyrexia [Recovered/Resolved]
  - Neutropenia [Fatal]
  - Vomiting [Recovered/Resolved]
  - Asthenia [Recovered/Resolved]
  - Neutropenia [Recovered/Resolved]
  - Disseminated intravascular coagulation [None]
